FAERS Safety Report 6268795-2 (Version None)
Quarter: 2009Q3

REPORT INFORMATION
  Report Type: 
  Country: None (occurrence: None)
  Receive Date: 20090710
  Receipt Date: 20090710
  Transmission Date: 20100115
  Serious: Yes (Life-Threatening, Hospitalization)
  Sender: FDA-Public Use
  Company Number: None

PATIENT
  Age: 43 Year
  Sex: Female
  Weight: 70 kg

DRUGS (1)
  1. AFRIN [Suspect]
     Indication: RHINITIS ALLERGIC

REACTIONS (1)
  - CEREBRAL ARTERY THROMBOSIS [None]
